FAERS Safety Report 6711995-5 (Version None)
Quarter: 2010Q2

REPORT INFORMATION
  Report Type: 
  Country: None (occurrence: None)
  Receive Date: 20100505
  Receipt Date: 20100429
  Transmission Date: 20101027
  Serious: Yes (Hospitalization, Disabling, Other)
  Sender: FDA-Public Use
  Company Number: US-ASTRAZENECA-2006UW15406

PATIENT
  Age: 40 Year
  Sex: Male
  Weight: 99.8 kg

DRUGS (6)
  1. SEROQUEL [Suspect]
     Indication: SLEEP DISORDER
     Route: 048
     Dates: start: 20030101, end: 20061001
  2. SEROQUEL [Suspect]
     Indication: DEPRESSION
     Route: 048
     Dates: start: 20030101, end: 20061001
  3. SEROQUEL [Suspect]
     Indication: ANXIETY
     Route: 048
     Dates: start: 20030101, end: 20061001
  4. DEPAKOTE [Concomitant]
     Route: 048
     Dates: start: 20040303
  5. ZYPREXA [Concomitant]
     Route: 048
     Dates: start: 20040504
  6. CYMBALTA [Concomitant]
     Route: 048
     Dates: start: 20040413

REACTIONS (2)
  - ASPIRATION [None]
  - DYSPHAGIA [None]
